FAERS Safety Report 23885841 (Version 1)
Quarter: 2024Q2

REPORT INFORMATION
  Report Type: Spontaneous
  Country: US (occurrence: None)
  Receive Date: 20240522
  Receipt Date: 20240522
  Transmission Date: 20240716
  Serious: Yes (Disabling)
  Sender: FDA-Public Use
  Company Number: None

PATIENT
  Age: 65 Year
  Sex: Male
  Weight: 100.8 kg

DRUGS (1)
  1. RYBELSUS [Suspect]
     Active Substance: SEMAGLUTIDE
     Indication: Type 2 diabetes mellitus
     Dosage: 1 TABLET(S) ORAL
     Route: 048
     Dates: start: 20240513, end: 20240520

REACTIONS (10)
  - Constipation [None]
  - Gastrointestinal sounds abnormal [None]
  - Nausea [None]
  - Eructation [None]
  - Dysgeusia [None]
  - Eructation [None]
  - Hallucination, visual [None]
  - Abdominal distension [None]
  - Feeling abnormal [None]
  - Muscular weakness [None]

NARRATIVE: CASE EVENT DATE: 20240519
